FAERS Safety Report 9876096 (Version 2)
Quarter: 2014Q1

REPORT INFORMATION
  Report Type: Spontaneous
  Country: DE (occurrence: None)
  Receive Date: 20140204
  Receipt Date: 20140219
  Transmission Date: 20141002
  Serious: Yes (Other)
  Sender: FDA-Public Use
  Company Number: 2014DE003001

PATIENT
  Sex: Female
  Weight: 71 kg

DRUGS (6)
  1. PONATINIB (AP24534)TABLET [Suspect]
     Indication: CHRONIC MYELOID LEUKAEMIA
     Route: 048
     Dates: start: 20130430, end: 20130505
  2. SYMBICORT (BUDESONIDE, FORMOTEROL FUMARATE) [Concomitant]
  3. SIMVASTATIN (SIMVASTATIN) [Concomitant]
  4. ASS (ACETYLSALICYLIC ACID) [Concomitant]
  5. VALSARTAN (VALSARTAN) [Concomitant]
  6. BELOC ZOK MITE (METOPROLOL) [Concomitant]

REACTIONS (6)
  - Peripheral arterial occlusive disease [None]
  - Peripheral vascular disorder [None]
  - Peripheral artery stenosis [None]
  - Femoral artery occlusion [None]
  - Aortic thrombosis [None]
  - Arterial thrombosis [None]
